FAERS Safety Report 19188454 (Version 3)
Quarter: 2021Q2

REPORT INFORMATION
  Report Type: Report from Study
  Country: US (occurrence: US)
  Receive Date: 20210427
  Receipt Date: 20210505
  Transmission Date: 20210717
  Serious: No
  Sender: FDA-Public Use
  Company Number: US-ASTRAZENECA-2021A361130

PATIENT
  Sex: Male

DRUGS (1)
  1. CALQUENCE [Suspect]
     Active Substance: ACALABRUTINIB
     Indication: CHRONIC LYMPHOCYTIC LEUKAEMIA
     Route: 048

REACTIONS (5)
  - Tremor [Recovering/Resolving]
  - Contusion [Recovering/Resolving]
  - Memory impairment [Recovering/Resolving]
  - Decubitus ulcer [Recovering/Resolving]
  - Insomnia [Recovering/Resolving]
